FAERS Safety Report 8580436-8 (Version None)
Quarter: 2012Q3

REPORT INFORMATION
  Report Type: 
  Country: None (occurrence: None)
  Receive Date: 20120808
  Receipt Date: 20120803
  Transmission Date: 20120928
  Serious: Yes (Other)
  Sender: FDA-Public Use
  Company Number: JP-PFIZER INC-2012178160

PATIENT
  Age: 98 Year
  Sex: Female

DRUGS (3)
  1. LASIX [Concomitant]
     Dosage: UNK
  2. LYRICA [Suspect]
     Indication: POST HERPETIC NEURALGIA
     Dosage: 75 MG, 2X/DAY
     Route: 048
     Dates: start: 20100802, end: 20100805
  3. WARFARIN [Concomitant]
     Dosage: UNK

REACTIONS (4)
  - FRACTURE [None]
  - DIZZINESS [None]
  - FALL [None]
  - BACK INJURY [None]
